FAERS Safety Report 8156089-X (Version None)
Quarter: 2012Q1

REPORT INFORMATION
  Report Type: 
  Country: None (occurrence: None)
  Receive Date: 20120221
  Receipt Date: 20120221
  Transmission Date: 20120608
  Serious: Yes (Death)
  Sender: FDA-Public Use
  Company Number: None

PATIENT
  Age: 78 Year
  Sex: Female
  Weight: 97.2 kg

DRUGS (12)
  1. PLAVIX [Concomitant]
  2. FENTANYL [Concomitant]
  3. HEPARIN [Concomitant]
  4. HEPARIN [Concomitant]
  5. SOLU-MEDROL [Concomitant]
  6. NICOTINE [Concomitant]
  7. ENALARILAT [Concomitant]
  8. LISINOPRIL [Concomitant]
  9. PROTINX [Concomitant]
  10. PROPTOLOL [Concomitant]
  11. TENECTEPLASE 50 MG VIAL DILUTED/FROZEN TO 5 MG/1 ML ALIQUOTA GENETECH [Suspect]
     Indication: VASCULAR GRAFT OCCLUSION
     Dosage: TENECTEPLASE 0.14-0.3 MG/HR CONTINUOUS INFUSI VIA RADIOLOGY DIRECTED CATHETER
     Route: 042
     Dates: start: 20120211, end: 20120212
  12. CILOSTAZOL [Concomitant]

REACTIONS (4)
  - VENTRICULAR FIBRILLATION [None]
  - CONTUSION [None]
  - CATHETER SITE DISCHARGE [None]
  - CARDIAC ARREST [None]
